FAERS Safety Report 16985385 (Version 2)
Quarter: 2019Q4

REPORT INFORMATION
  Report Type: Not Available
  Country: US (occurrence: US)
  Receive Date: 20191101
  Receipt Date: 20191119
  Transmission Date: 20200122
  Serious: No
  Sender: FDA-Public Use
  Company Number: US-NEUROCRINE BIOSCIENCES INC.-2019NBI03130

PATIENT
  Age: 72 Year
  Sex: Female

DRUGS (3)
  1. INGREZZA [Suspect]
     Active Substance: VALBENAZINE
     Indication: TOURETTE^S DISORDER
     Route: 048
     Dates: start: 2019
  2. INGREZZA [Suspect]
     Active Substance: VALBENAZINE
     Indication: TREMOR
  3. INGREZZA [Suspect]
     Active Substance: VALBENAZINE
     Indication: TARDIVE DYSKINESIA
     Route: 048
     Dates: start: 20190924, end: 2019

REACTIONS (4)
  - Muscle twitching [Recovered/Resolved]
  - Somnolence [Unknown]
  - Feeling jittery [Unknown]
  - Off label use [Unknown]

NARRATIVE: CASE EVENT DATE: 2019
